FAERS Safety Report 9968765 (Version 1)
Quarter: 2014Q1

REPORT INFORMATION
  Report Type: Report from Study
  Country: US (occurrence: US)
  Receive Date: 20140306
  Receipt Date: 20140306
  Transmission Date: 20141002
  Serious: No
  Sender: FDA-Public Use
  Company Number: US-ABBVIE-13P-163-1142233-00

PATIENT
  Age: 37 Year
  Sex: Female
  Weight: 81.72 kg

DRUGS (11)
  1. HUMIRA [Suspect]
     Indication: RHEUMATOID ARTHRITIS
     Dates: start: 201304, end: 201305
  2. LEVOTHYROXINE [Concomitant]
     Indication: HYPOTHYROIDISM
  3. GABAPENTIN [Concomitant]
     Indication: FIBROMYALGIA
  4. METHOTREXATE [Concomitant]
     Indication: RHEUMATOID ARTHRITIS
  5. FOLIC ACID [Concomitant]
     Indication: VITAMIN SUPPLEMENTATION
  6. VITAMIN D [Concomitant]
     Indication: VITAMIN D DEFICIENCY
  7. MULTIVITAMIN [Concomitant]
     Indication: VITAMIN SUPPLEMENTATION
  8. SUDAFED [Concomitant]
     Indication: SINUS HEADACHE
     Dosage: PRN
  9. BENADRYL [Concomitant]
     Indication: HYPERSENSITIVITY
     Dosage: PRN
  10. ZOLOFT [Concomitant]
     Indication: DEPRESSION
  11. ISOMETH/APAP/DICHLOR [Concomitant]
     Indication: MIGRAINE
     Dosage: PRN

REACTIONS (1)
  - Bronchitis [Recovered/Resolved]
